FAERS Safety Report 5121041-5 (Version None)
Quarter: 2006Q4

REPORT INFORMATION
  Report Type: 
  Country: None (occurrence: None)
  Receive Date: 20061002
  Receipt Date: 20060926
  Transmission Date: 20070319
  Serious: Yes (Other)
  Sender: FDA-Public Use
  Company Number: 2005148444

PATIENT
  Age: 31 Year
  Sex: Male

DRUGS (2)
  1. SERTRALINE [Suspect]
     Indication: DEPRESSION
     Dosage: 150 MG
  2. FINASTERIDE [Suspect]
     Indication: ALOPECIA
     Dosage: 1 MG

REACTIONS (6)
  - EPISTAXIS [None]
  - HAEMOGLOBIN DECREASED [None]
  - HYPERTENSION [None]
  - NASAL DISORDER [None]
  - PLATELET AGGREGATION DECREASED [None]
  - POST PROCEDURAL HAEMORRHAGE [None]
